FAERS Safety Report 12423293 (Version 1)
Quarter: 2016Q2

REPORT INFORMATION
  Report Type: Spontaneous
  Country: US (occurrence: None)
  Receive Date: 20160531
  Receipt Date: 20160531
  Transmission Date: 20160815
  Serious: Yes (Other)
  Sender: FDA-Public Use
  Company Number: None

PATIENT
  Age: 51 Year
  Sex: Female
  Weight: 78.93 kg

DRUGS (2)
  1. SYNTHROID [Suspect]
     Active Substance: LEVOTHYROXINE SODIUM
     Indication: THYROID DISORDER
     Dosage: IN THE MORNING TAKEN BY MOUTH
     Route: 048
     Dates: start: 20151229, end: 20160527
  2. LEVOTHYROXINE. [Concomitant]
     Active Substance: LEVOTHYROXINE

REACTIONS (19)
  - Dysgeusia [None]
  - Dysphagia [None]
  - Hunger [None]
  - Nervousness [None]
  - Swollen tongue [None]
  - Panic reaction [None]
  - Heart rate irregular [None]
  - Oropharyngeal pain [None]
  - Headache [None]
  - Throat tightness [None]
  - Burn oesophageal [None]
  - Wheezing [None]
  - Tongue disorder [None]
  - Drug withdrawal syndrome [None]
  - Syncope [None]
  - Drug hypersensitivity [None]
  - Oral discomfort [None]
  - Neck pain [None]
  - Paraesthesia [None]

NARRATIVE: CASE EVENT DATE: 20160101
